FAERS Safety Report 21720882 (Version 6)
Quarter: 2023Q2

REPORT INFORMATION
  Report Type: Report from Study
  Country: US (occurrence: US)
  Receive Date: 20221213
  Receipt Date: 20230427
  Transmission Date: 20230721
  Serious: No
  Sender: FDA-Public Use
  Company Number: US-002147023-NVSC2022US287001

PATIENT
  Sex: Female

DRUGS (2)
  1. KISQALI [Suspect]
     Active Substance: RIBOCICLIB
     Indication: Breast cancer
     Dosage: 600 MG, QD
     Route: 048
     Dates: start: 202211
  2. KISQALI [Suspect]
     Active Substance: RIBOCICLIB
     Dosage: 400 MG, QD
     Route: 048
     Dates: start: 202211

REACTIONS (12)
  - Dehydration [Unknown]
  - Taste disorder [Unknown]
  - Malaise [Unknown]
  - Blood cholesterol abnormal [Unknown]
  - Platelet count decreased [Unknown]
  - Nausea [Unknown]
  - Asthenia [Unknown]
  - White blood cell count decreased [Unknown]
  - Decreased appetite [Unknown]
  - Fatigue [Unknown]
  - Alopecia [Unknown]
  - Influenza [Unknown]
